FAERS Safety Report 5428824-2 (Version None)
Quarter: 2007Q3

REPORT INFORMATION
  Report Type: 
  Country: None (occurrence: None)
  Receive Date: 20070829
  Receipt Date: 20070611
  Transmission Date: 20080115
  Serious: No
  Sender: FDA-Public Use
  Company Number: A0648919A

PATIENT
  Age: 80 Year
  Sex: Female

DRUGS (2)
  1. ZOVIRAX [Suspect]
     Indication: GENITAL HERPES
     Route: 061
  2. ZIAC [Concomitant]
     Indication: HYPERTENSION
     Route: 048

REACTIONS (4)
  - DRUG INEFFECTIVE [None]
  - GENITAL HERPES [None]
  - PHARMACEUTICAL PRODUCT COMPLAINT [None]
  - RASH [None]
